FAERS Safety Report 5076170-1 (Version None)
Quarter: 2006Q3

REPORT INFORMATION
  Report Type: 
  Country: None (occurrence: None)
  Receive Date: 20060807
  Receipt Date: 20060721
  Transmission Date: 20061208
  Serious: Yes (Other)
  Sender: FDA-Public Use
  Company Number: US-2006-020328

PATIENT
  Age: 60 Year
  Sex: Male

DRUGS (7)
  1. LEUKINE [Suspect]
     Indication: HEPATIC EMBOLISATION
     Dosage: 2000 UG, 1 DOSE, INTRAHEPATIC
     Route: 025
     Dates: start: 20060210, end: 20060210
  2. ETHIODOL [Suspect]
     Indication: HEPATIC EMBOLISATION
     Dosage: INTRAHEPATIC
     Route: 025
     Dates: start: 20060210, end: 20060210
  3. ABSORBABLE GELATIN SPONGE (ABSORBABLE GELATIN SPONGE) [Suspect]
     Indication: HEPATIC EMBOLISATION
     Dosage: INTRAHEPATIC
     Route: 025
     Dates: start: 20060210, end: 20060210
  4. CARMUSTINE [Suspect]
     Indication: THERAPEUTIC EMBOLISATION
     Dosage: CYCLE #1, INTRAHEPATIC
     Route: 025
     Dates: start: 20060310, end: 20060310
  5. PROTONIX [Concomitant]
  6. ZETIA [Concomitant]
  7. TRICOR [Concomitant]

REACTIONS (5)
  - AUTOIMMUNE DISORDER [None]
  - HEPATIC ARTERY ANEURYSM [None]
  - MALIGNANT NEOPLASM PROGRESSION [None]
  - RED BLOOD CELL SEDIMENTATION RATE INCREASED [None]
  - RENAL ANEURYSM [None]
